FAERS Safety Report 5742231-4 (Version None)
Quarter: 2008Q2

REPORT INFORMATION
  Report Type: 
  Country: None (occurrence: None)
  Receive Date: 20080514
  Receipt Date: 20070730
  Transmission Date: 20081010
  Serious: Yes (Hospitalization)
  Sender: FDA-Public Use
  Company Number: US200708000039

PATIENT
  Sex: Female

DRUGS (4)
  1. KEFLEX [Suspect]
  2. IBUPROFEN [Concomitant]
  3. SYNTHROID [Concomitant]
  4. MULTIVITAMIN [Concomitant]

REACTIONS (1)
  - ANAPHYLACTIC REACTION [None]
